FAERS Safety Report 9954306 (Version 2)
Quarter: 2014Q1

REPORT INFORMATION
  Report Type: Report from Study
  Country: US (occurrence: US)
  Receive Date: 20140304
  Receipt Date: 20140304
  Transmission Date: 20141002
  Serious: Yes (Hospitalization)
  Sender: FDA-Public Use
  Company Number: US-ABBVIE-13P-163-1075562-00

PATIENT
  Age: 47 Year
  Sex: Male
  Weight: 83.99 kg

DRUGS (8)
  1. HUMIRA [Suspect]
     Indication: PSORIASIS
     Dates: start: 2011, end: 201210
  2. HUMIRA [Suspect]
     Route: 058
     Dates: start: 20130227, end: 20130227
  3. HUMIRA [Suspect]
     Dates: start: 20130306
  4. SYNTHROID [Suspect]
     Indication: THYROID DISORDER
     Dates: end: 201304
  5. SYNTHROID [Suspect]
  6. SYNTHROID [Suspect]
     Dates: start: 201303
  7. TYLENOL [Concomitant]
     Indication: PAIN
  8. MOTRIN [Concomitant]
     Indication: PAIN

REACTIONS (11)
  - Bone disorder [Not Recovered/Not Resolved]
  - Arthralgia [Not Recovered/Not Resolved]
  - Therapy change [Not Recovered/Not Resolved]
  - Psoriasis [Not Recovered/Not Resolved]
  - Skin haemorrhage [Not Recovered/Not Resolved]
  - Contusion [Not Recovered/Not Resolved]
  - Drug dispensing error [Not Recovered/Not Resolved]
  - Stress [Not Recovered/Not Resolved]
  - Crying [Not Recovered/Not Resolved]
  - Thyroid disorder [Not Recovered/Not Resolved]
  - Blood thyroid stimulating hormone decreased [Unknown]
